FAERS Safety Report 5631162-6 (Version None)
Quarter: 2008Q1

REPORT INFORMATION
  Report Type: 
  Country: None (occurrence: None)
  Receive Date: 20080219
  Receipt Date: 20080211
  Transmission Date: 20080703
  Serious: Yes (Hospitalization, Other)
  Sender: FDA-Public Use
  Company Number: US-BOEHRINGER INGELHEIM GMBH, GERMANY-2007-BP-21228BP

PATIENT
  Sex: Male

DRUGS (26)
  1. MIRAPEX [Suspect]
     Indication: PARKINSON'S DISEASE
     Route: 048
     Dates: start: 20031101
  2. LODOSYN [Concomitant]
     Indication: PARKINSON'S DISEASE
  3. CARBIDOPA ER [Concomitant]
     Indication: PARKINSON'S DISEASE
  4. PARCOPA [Concomitant]
     Indication: PARKINSON'S DISEASE
  5. AMANTADINE HCL [Concomitant]
     Indication: PARKINSON'S DISEASE
  6. AZILECT [Concomitant]
  7. LORAZEPAM [Concomitant]
  8. MOBIC [Concomitant]
  9. ALPRAZOLAM [Concomitant]
  10. COMTAN [Concomitant]
     Dates: end: 20060901
  11. RANITIDINE [Concomitant]
  12. IBUPROFEN [Concomitant]
  13. ADVIL [Concomitant]
  14. MOTRIN [Concomitant]
  15. ADVAIR DISKUS 100/50 [Concomitant]
  16. TUMS [Concomitant]
  17. ZANTAC [Concomitant]
  18. ARTHROTEC [Concomitant]
  19. SELEGILINE HCL [Concomitant]
     Dates: end: 20070101
  20. ASPIRIN [Concomitant]
  21. FLEXERIL [Concomitant]
     Indication: PARKINSON'S DISEASE
  22. AZILECT [Concomitant]
     Indication: PARKINSON'S DISEASE
  23. ZELAPAR [Concomitant]
     Indication: PARKINSON'S DISEASE
     Dates: start: 20070101
  24. PLAVIX [Concomitant]
     Dates: start: 20060101
  25. ASPIRIN [Concomitant]
     Dates: start: 20060101
  26. NEUPRO [Concomitant]
     Indication: PARKINSON'S DISEASE
     Dates: start: 20071201

REACTIONS (10)
  - AMNESIA [None]
  - DEPRESSION [None]
  - ECONOMIC PROBLEM [None]
  - FALL [None]
  - GAMBLING [None]
  - MUSCULOSKELETAL STIFFNESS [None]
  - ON AND OFF PHENOMENON [None]
  - PAIN [None]
  - STOMACH DISCOMFORT [None]
  - SUICIDE ATTEMPT [None]
